FAERS Safety Report 6997356 (Version 6)
Quarter: 2014Q3

REPORT INFORMATION
  Report Type: Spontaneous
  Country: JP (occurrence: JP)
  Receive Date: 20090519
  Receipt Date: 20140804
  Transmission Date: 20150326
  Serious: Yes (Death)
  Sender: FDA-Public Use
  Company Number: JP-ELI_LILLY_AND_COMPANY-JP200905003615

PATIENT
  Age: 71 Year
  Sex: Male
  Weight: 52.7 kg

DRUGS (30)
  1. CISPLATIN. [Concomitant]
     Active Substance: CISPLATIN
     Indication: PLEURAL MESOTHELIOMA MALIGNANT
     Dosage: 90 MG, OTHER
     Route: 042
     Dates: start: 20090330, end: 20090330
  2. MAGMITT [Concomitant]
     Active Substance: MAGNESIUM OXIDE
     Dosage: 330 MG, 3/D
     Route: 048
  3. BAYASPIRIN [Concomitant]
     Active Substance: ASPIRIN
     Dosage: 100 MG, DAILY (1/D)
     Route: 048
  4. CRAVIT [Concomitant]
     Active Substance: LEVOFLOXACIN
     Dosage: 200 MG, DAILY (1/D)
     Route: 048
  5. LOXONIN [Concomitant]
     Active Substance: LOXOPROFEN SODIUM
     Dosage: 60 MG, 3/D
     Route: 048
  6. OXYCONTIN [Concomitant]
     Active Substance: OXYCODONE HYDROCHLORIDE
     Dosage: 10 MG, 2/D
     Route: 048
  7. ALIMTA [Suspect]
     Active Substance: PEMETREXED DISODIUM
     Indication: PLEURAL MESOTHELIOMA MALIGNANT
     Dosage: 750 MG, OTHER
     Route: 042
     Dates: start: 20090330, end: 20090330
  8. PURSENNID [Concomitant]
     Active Substance: SENNOSIDES A AND B CALCIUM
     Dosage: 12 MG, DAILY (1/D)
     Route: 048
  9. RHYTHMY [Concomitant]
     Active Substance: RILMAZAFONE HYDROCHLORIDE
     Dosage: 1 D/F, DAILY (1/D)
     Route: 048
     Dates: start: 20090502, end: 20090503
  10. METHYCOBAL [Concomitant]
     Active Substance: METHYLCOBALAMIN
     Dosage: 1 MG, OTHER
     Route: 030
     Dates: start: 20090323, end: 20090323
  11. DECADRON [Concomitant]
     Active Substance: DEXAMETHASONE
     Dosage: 12 MG, DAILY (1/D)
     Route: 042
     Dates: end: 20090404
  12. LAXOBERON [Concomitant]
     Active Substance: SODIUM PICOSULFATE
     Indication: CONSTIPATION
     Dosage: UNK, AS NEEDED
  13. VEEN 3G [Concomitant]
     Dosage: 500 ML, 2/D
     Route: 042
  14. CERCINE [Concomitant]
     Active Substance: DIAZEPAM
     Dosage: 5 MG, DAILY (1/D)
     Route: 048
  15. BIOFERMIN R [Concomitant]
     Active Substance: BACILLUS SUBTILIS\LACTOBACILLUS ACIDOPHILUS\STREPTOCOCCUS FAECAIS
     Dosage: 6 MG, 3/D
     Route: 048
  16. OPSO [Concomitant]
     Active Substance: MORPHINE HYDROCHLORIDE
     Indication: PAIN
     Dosage: UNK, AS NEEDED
  17. TOLOPELON [Concomitant]
     Dosage: 1 MG, DAILY (1/D)
     Route: 048
  18. VEEN 3G [Concomitant]
     Dosage: 500 ML, DAILY (1/D)
     Route: 042
  19. OXYCONTIN [Concomitant]
     Active Substance: OXYCODONE HYDROCHLORIDE
     Dosage: 5 MG, 2/D
     Route: 048
  20. PANVITAN [Concomitant]
     Dosage: 1 G, DAILY (1/D)
     Route: 048
     Dates: start: 20090323, end: 20090405
  21. TAKEPRON [Concomitant]
     Active Substance: LANSOPRAZOLE
     Dosage: 30 MG, OTHER
     Route: 048
  22. MUCOSTA [Concomitant]
     Active Substance: REBAMIPIDE
     Dosage: 100 MG, 3/D
     Route: 048
  23. AMLODINE [Concomitant]
     Active Substance: AMLODIPINE BESYLATE
     Dosage: 5 MG, DAILY (1/D)
     Route: 048
  24. PYRINAZIN [Concomitant]
     Active Substance: ACETAMINOPHEN
     Indication: PAIN
     Dosage: 0.5 G, AS NEEDED
     Route: 048
  25. PANVITAN [Concomitant]
     Dosage: 1 G, DAILY (1/D)
     Route: 048
     Dates: start: 20090410, end: 20090423
  26. MAGMITT [Concomitant]
     Active Substance: MAGNESIUM OXIDE
     Dosage: 250 MG, 3/D
     Route: 048
  27. ITOROL [Concomitant]
     Active Substance: ISOSORBIDE MONONITRATE
     Indication: ANGINA PECTORIS
     Dosage: 20 MG, 2/D
     Route: 048
  28. NITROPEN [Concomitant]
     Active Substance: NITROGLYCERIN
     Dosage: 0.3 MG, AS NEEDED
     Route: 048
  29. ZANTAC [Concomitant]
     Active Substance: RANITIDINE HYDROCHLORIDE
     Dosage: 150 MG, DAILY (1/D)
     Route: 048
  30. DUROTEP [Concomitant]
     Active Substance: FENTANYL
     Dosage: 1 D/F, TRIDAILY

REACTIONS (1)
  - Interstitial lung disease [Fatal]

NARRATIVE: CASE EVENT DATE: 20090430
